FAERS Safety Report 23717151 (Version 2)
Quarter: 2024Q2

REPORT INFORMATION
  Report Type: Report from Study
  Country: EG (occurrence: EG)
  Receive Date: 20240408
  Receipt Date: 20240417
  Transmission Date: 20240716
  Serious: No
  Sender: FDA-Public Use
  Company Number: EG-SANDOZ-SDZ2023EG009382

PATIENT
  Sex: Female

DRUGS (1)
  1. HYRIMOZ [Suspect]
     Active Substance: ADALIMUMAB-ADAZ
     Indication: Sarcoidosis
     Dosage: 40 MG, Q2W, EVERY OTHER WEEK FOR 3 MONTHS
     Route: 058

REACTIONS (1)
  - Off label use [Unknown]
